FAERS Safety Report 17286645 (Version 1)
Quarter: 2020Q1

REPORT INFORMATION
  Report Type: Spontaneous
  Country: CH (occurrence: CH)
  Receive Date: 20200119
  Receipt Date: 20200119
  Transmission Date: 20200409
  Serious: Yes (Other)
  Sender: FDA-Public Use
  Company Number: CH-CELLTRION INC.-2020CH017725

PATIENT

DRUGS (1)
  1. INFLECTRA [Suspect]
     Active Substance: INFLIXIMAB-DYYB
     Indication: AXIAL SPONDYLOARTHRITIS
     Dosage: 400 MG, WEEKS 0, 2, 6, THEN EVERY 8 WEEKS
     Route: 040
     Dates: start: 20171107

REACTIONS (1)
  - Erectile dysfunction [Unknown]

NARRATIVE: CASE EVENT DATE: 20171107
